FAERS Safety Report 5652081-5 (Version None)
Quarter: 2008Q1

REPORT INFORMATION
  Report Type: 
  Country: None (occurrence: None)
  Receive Date: 20080305
  Receipt Date: 20080226
  Transmission Date: 20080703
  Serious: Yes (Other)
  Sender: FDA-Public Use
  Company Number: US-PFIZER INC-2008018065

PATIENT
  Sex: Female
  Weight: 71.7 kg

DRUGS (3)
  1. LIPITOR [Suspect]
     Indication: HYPERLIPIDAEMIA
     Dosage: TEXT:BETWEEN 40 AND 80 MG
  2. LAMICTAL [Interacting]
  3. TRILEPTAL [Interacting]

REACTIONS (5)
  - ASTHENIA [None]
  - FOOT DEFORMITY [None]
  - FRACTURE [None]
  - NEUROPATHY PERIPHERAL [None]
  - POTENTIATING DRUG INTERACTION [None]
